FAERS Safety Report 6373136-6 (Version None)
Quarter: 2009Q3

REPORT INFORMATION
  Report Type: 
  Country: None (occurrence: None)
  Receive Date: 20090924
  Receipt Date: 20090728
  Transmission Date: 20100115
  Serious: Yes (Other)
  Sender: FDA-Public Use
  Company Number: US-ASTRAZENECA-2009UW03281

PATIENT
  Age: 40 Year
  Sex: Male

DRUGS (5)
  1. SEROQUEL [Suspect]
     Indication: AFFECTIVE DISORDER
     Route: 048
     Dates: start: 20060101
  2. SEROQUEL [Suspect]
     Indication: INSOMNIA
     Route: 048
     Dates: start: 20060101
  3. SEROQUEL [Suspect]
     Route: 048
     Dates: end: 20081001
  4. SEROQUEL [Suspect]
     Route: 048
     Dates: end: 20081001
  5. ENDERIL [Concomitant]
     Indication: ANXIETY

REACTIONS (1)
  - PANCREATITIS [None]
